FAERS Safety Report 6875885-X (Version None)
Quarter: 2010Q3

REPORT INFORMATION
  Report Type: 
  Country: None (occurrence: None)
  Receive Date: 20100727
  Receipt Date: 20100717
  Transmission Date: 20110219
  Serious: Yes (Other)
  Sender: FDA-Public Use
  Company Number: US-JNJCH-2010016835

PATIENT
  Sex: Female

DRUGS (3)
  1. BENADRYL [Suspect]
     Indication: PRODUCT USED FOR UNKNOWN INDICATION
     Dosage: TEXT:SEVERAL TABLETS
     Route: 048
  2. LEXAPRO [Suspect]
     Indication: DEPRESSION
     Dosage: TEXT:UNKNOWN
     Route: 065
  3. ALCOHOL [Suspect]
     Indication: ALCOHOL USE
     Dosage: TEXT:TWO GLASSES OF WINE
     Route: 048

REACTIONS (3)
  - BLOOD ALCOHOL ABNORMAL [None]
  - LOSS OF CONSCIOUSNESS [None]
  - ROAD TRAFFIC ACCIDENT [None]
